FAERS Safety Report 5637819-5 (Version None)
Quarter: 2008Q1

REPORT INFORMATION
  Report Type: 
  Country: None (occurrence: None)
  Receive Date: 20080221
  Receipt Date: 20080215
  Transmission Date: 20080703
  Serious: Yes (Other)
  Sender: FDA-Public Use
  Company Number: A0710138A

PATIENT
  Age: 34 Year
  Sex: Male

DRUGS (2)
  1. DIPHENHYDRAMINE CITRATE + PARACETAMOL (FORMULATION UNKNOWN) (DIPHENHYD [Suspect]
     Indication: DRUG USE FOR UNKNOWN INDICATION
  2. DIAZEPAM [Suspect]

REACTIONS (2)
  - ABNORMAL BEHAVIOUR [None]
  - MULTIPLE DRUG OVERDOSE INTENTIONAL [None]
